FAERS Safety Report 13343694 (Version 1)
Quarter: 2017Q1

REPORT INFORMATION
  Report Type: Report from Study
  Country: US (occurrence: US)
  Receive Date: 20170316
  Receipt Date: 20170316
  Transmission Date: 20170428
  Serious: Yes (Hospitalization)
  Sender: FDA-Public Use
  Company Number: PHHO2017US001813

PATIENT
  Age: 67 Year
  Sex: Female
  Weight: 77.2 kg

DRUGS (2)
  1. PAZOPANIB [Suspect]
     Active Substance: PAZOPANIB
     Dosage: 12000 MG (TOTAL DOSE)
     Route: 048
     Dates: start: 20150915, end: 20150929
  2. PAZOPANIB [Suspect]
     Active Substance: PAZOPANIB
     Indication: CARCINOID TUMOUR
     Dosage: 800 MG, QD
     Route: 048
     Dates: start: 20150721

REACTIONS (1)
  - Bone pain [Recovering/Resolving]

NARRATIVE: CASE EVENT DATE: 20150929
